FAERS Safety Report 5265752-X (Version None)
Quarter: 2007Q1

REPORT INFORMATION
  Report Type: 
  Country: None (occurrence: None)
  Receive Date: 20061213
  Receipt Date: 20040211
  Transmission Date: 20070707
  Serious: Yes (Other)
  Sender: FDA-Public Use
  Company Number: 2004UW02461

PATIENT
  Age: 64 Year
  Sex: Female
  Weight: 57.1532 kg

DRUGS (8)
  1. IRESSA [Suspect]
     Indication: BRONCHIAL CARCINOMA
     Dates: start: 20030901
  2. DIGITEX [Concomitant]
  3. PREVACID [Concomitant]
  4. METOPROLOL SUCCINATE [Concomitant]
  5. VICODIN [Concomitant]
  6. NEURONTIN [Concomitant]
  7. IRON [Concomitant]
  8. PROCRIT [Concomitant]

REACTIONS (1)
  - RED BLOOD CELL COUNT INCREASED [None]
